FAERS Safety Report 25341251 (Version 1)
Quarter: 2025Q2

REPORT INFORMATION
  Report Type: Spontaneous
  Country: US (occurrence: None)
  Receive Date: 20250520
  Receipt Date: 20250520
  Transmission Date: 20250717
  Serious: Yes (Disabling)
  Sender: FDA-CTU
  Company Number: None

PATIENT
  Age: 72 Year
  Sex: Female
  Weight: 73.03 kg

DRUGS (11)
  1. EVENITY [Suspect]
     Active Substance: ROMOSOZUMAB-AQQG
     Indication: Osteoporosis
     Dates: start: 20250507
  2. PREGABALIN [Concomitant]
     Active Substance: PREGABALIN
  3. NAPROXEN [Concomitant]
     Active Substance: NAPROXEN
  4. Lovethyroxine [Concomitant]
  5. BACLOFEN [Concomitant]
     Active Substance: BACLOFEN
  6. FUROSEMIDE [Concomitant]
     Active Substance: FUROSEMIDE
  7. MIRALAX [Concomitant]
     Active Substance: POLYETHYLENE GLYCOL 3350
  8. ASPIRIN [Concomitant]
     Active Substance: ASPIRIN
  9. Tums calcium for life bone [Concomitant]
  10. COLLAGEN [Concomitant]
     Active Substance: COLLAGEN
  11. VITAMINS [Concomitant]
     Active Substance: VITAMINS

REACTIONS (5)
  - Injection site warmth [None]
  - Injection site swelling [None]
  - Pain [None]
  - Arthralgia [None]
  - Gait disturbance [None]

NARRATIVE: CASE EVENT DATE: 20250507
